FAERS Safety Report 5586080-9 (Version None)
Quarter: 2007Q4

REPORT INFORMATION
  Report Type: 
  Country: None (occurrence: None)
  Receive Date: 20071205
  Receipt Date: 20070123
  Transmission Date: 20080405
  Serious: Yes (Other)
  Sender: FDA-Public Use
  Company Number: HQWYE364124JAN07

PATIENT
  Age: 53 Year
  Sex: Female

DRUGS (3)
  1. EFFEXOR XR [Suspect]
     Indication: MAJOR DEPRESSION
     Dosage: 75 MG 3X PER 1 DAY, ORAL
     Route: 048
     Dates: start: 20050830, end: 20070123
  2. IBUPROFEN [Concomitant]
  3. SKELAXIN [Concomitant]

REACTIONS (4)
  - ABNORMAL BEHAVIOUR [None]
  - CONFUSIONAL STATE [None]
  - DRUG WITHDRAWAL SYNDROME [None]
  - SEROTONIN SYNDROME [None]
